FAERS Safety Report 12578440 (Version 2)
Quarter: 2016Q3

REPORT INFORMATION
  Report Type: Spontaneous
  Country: GB (occurrence: GB)
  Receive Date: 20160721
  Receipt Date: 20160906
  Transmission Date: 20161109
  Serious: Yes (Hospitalization, Disabling)
  Sender: FDA-Public Use
  Company Number: GB-ACCORD-042381

PATIENT
  Age: 91 Year
  Sex: Male

DRUGS (5)
  1. METHOTREXATE. [Suspect]
     Active Substance: METHOTREXATE
     Indication: RHEUMATOID ARTHRITIS
     Route: 048
     Dates: start: 20140101, end: 20160601
  2. FOLIC ACID. [Concomitant]
     Active Substance: FOLIC ACID
  3. TAMSULOSIN/TAMSULOSIN HYDROCHLORIDE [Concomitant]
  4. LUCENTIS [Concomitant]
     Active Substance: RANIBIZUMAB
  5. FINASTERIDE. [Concomitant]
     Active Substance: FINASTERIDE

REACTIONS (5)
  - Pulmonary fibrosis [Recovering/Resolving]
  - Abnormal loss of weight [Unknown]
  - General physical health deterioration [Unknown]
  - Fall [Unknown]
  - Mobility decreased [Unknown]
